FAERS Safety Report 8395793-5 (Version None)
Quarter: 2012Q2

REPORT INFORMATION
  Report Type: 
  Country: None (occurrence: None)
  Receive Date: 20120530
  Receipt Date: 20120528
  Transmission Date: 20120825
  Serious: Yes (Hospitalization)
  Sender: FDA-Public Use
  Company Number: IT-ROCHE-1071912

PATIENT
  Sex: Female

DRUGS (13)
  1. ZITHROMAX [Concomitant]
     Route: 048
  2. DIFLUCAN [Concomitant]
  3. BECOZYM [Concomitant]
     Route: 048
  4. VFEND [Concomitant]
  5. RAMIPRIL [Concomitant]
  6. MABTHERA [Suspect]
     Indication: NON-HODGKIN'S LYMPHOMA
     Route: 041
     Dates: start: 20120511, end: 20120511
  7. RAMIPRIL [Concomitant]
     Route: 048
  8. PANTOPRAZOLE SODIUM [Concomitant]
  9. NIFEDICOR [Concomitant]
     Route: 048
  10. ENOXAPARIN SODIUM [Concomitant]
     Route: 058
  11. ALLOPURINOL [Concomitant]
     Dosage: 300 MG TABLET
     Route: 048
  12. FOLINA [Concomitant]
  13. LYRICA [Concomitant]

REACTIONS (3)
  - FEBRILE NEUTROPENIA [None]
  - HEPATITIS CHOLESTATIC [None]
  - WHITE BLOOD CELL COUNT DECREASED [None]
